FAERS Safety Report 11993763 (Version 1)
Quarter: 2016Q1

REPORT INFORMATION
  Report Type: Spontaneous
  Country: ES (occurrence: ES)
  Receive Date: 20160203
  Receipt Date: 20160203
  Transmission Date: 20160526
  Serious: Yes (Hospitalization)
  Sender: FDA-Public Use
  Company Number: PHHY2016ES010365

PATIENT
  Age: 82 Year
  Sex: Female
  Weight: 72 kg

DRUGS (9)
  1. LOXIFAN [Suspect]
     Active Substance: LETROZOLE
     Indication: BREAST NEOPLASM
     Dosage: 1 DF, QD
     Route: 048
     Dates: start: 20131025, end: 20150119
  2. FURANTOINA [Concomitant]
     Indication: PRODUCT USED FOR UNKNOWN INDICATION
     Dosage: 50 MG, QD
     Route: 048
     Dates: start: 2003
  3. TRANKIMAZIN [Concomitant]
     Active Substance: ALPRAZOLAM
     Indication: ANXIETY
     Dosage: 0.25 MG, QD
     Route: 048
     Dates: start: 2007
  4. NOLOTIL//METAMIZOLE MAGNESIUM [Concomitant]
     Active Substance: METAMIZOLE MAGNESIUM
     Indication: PRODUCT USED FOR UNKNOWN INDICATION
     Route: 048
  5. OMEPRAZOLE. [Concomitant]
     Active Substance: OMEPRAZOLE
     Indication: PRODUCT USED FOR UNKNOWN INDICATION
     Route: 048
  6. PROLIA [Concomitant]
     Active Substance: DENOSUMAB
     Indication: PRODUCT USED FOR UNKNOWN INDICATION
     Dosage: 60 MG, ONCE PER SEMESTER
     Route: 065
     Dates: start: 20151117
  7. VENLAFAXINE [Concomitant]
     Active Substance: VENLAFAXINE HYDROCHLORIDE
     Indication: PRODUCT USED FOR UNKNOWN INDICATION
     Dosage: UNK
     Route: 048
     Dates: start: 20151019
  8. SINEMET PLUS [Concomitant]
     Active Substance: CARBIDOPA\LEVODOPA
     Indication: PRODUCT USED FOR UNKNOWN INDICATION
     Dosage: UNK
     Route: 065
     Dates: start: 20151119
  9. LORMETAZEPAM [Concomitant]
     Active Substance: LORMETAZEPAM
     Indication: PRODUCT USED FOR UNKNOWN INDICATION
     Dosage: 1 MG, QD
     Route: 048
     Dates: start: 20121210

REACTIONS (8)
  - Femur fracture [Unknown]
  - Spinal compression fracture [Unknown]
  - Hand fracture [Unknown]
  - Balance disorder [Unknown]
  - Nervousness [Unknown]
  - Fall [Unknown]
  - Fatigue [Unknown]
  - Tachycardia [Unknown]

NARRATIVE: CASE EVENT DATE: 201311
